FAERS Safety Report 14668249 (Version 1)
Quarter: 2018Q1

REPORT INFORMATION
  Report Type: Spontaneous
  Country: US (occurrence: US)
  Receive Date: 20180321
  Receipt Date: 20180321
  Transmission Date: 20180509
  Serious: Yes (Hospitalization, Disabling)
  Sender: FDA-Public Use
  Company Number: None

PATIENT
  Age: 27 Year
  Sex: Female
  Weight: 45.36 kg

DRUGS (1)
  1. NEXPLANON [Suspect]
     Active Substance: ETONOGESTREL
     Dates: start: 20140223, end: 20170417

REACTIONS (4)
  - Hypoaesthesia [None]
  - Depression [None]
  - Pain in extremity [None]
  - Device dislocation [None]

NARRATIVE: CASE EVENT DATE: 20170417
